FAERS Safety Report 8289794-5 (Version None)
Quarter: 2012Q2

REPORT INFORMATION
  Report Type: 
  Country: None (occurrence: None)
  Receive Date: 20120417
  Receipt Date: 20120412
  Transmission Date: 20120825
  Serious: No
  Sender: FDA-Public Use
  Company Number: US-PFIZER INC-2012092073

PATIENT
  Sex: Female
  Weight: 97 kg

DRUGS (17)
  1. ALDACTONE [Suspect]
     Indication: BLOOD TESTOSTERONE INCREASED
  2. LISINOPRIL [Concomitant]
     Indication: HYPERTENSION
     Dosage: 10 MG, 1X/DAY
     Dates: start: 20030101
  3. SPIRONOLACTONE [Suspect]
     Indication: POLYCYSTIC OVARIES
     Dosage: 50 MG, 2X/DAY
     Route: 048
     Dates: start: 20030101, end: 20110501
  4. SPIRONOLACTONE [Suspect]
  5. VENTOLIN [Concomitant]
     Indication: CHRONIC OBSTRUCTIVE PULMONARY DISEASE
     Dosage: UNK
     Dates: start: 20030101
  6. ALDACTONE [Suspect]
     Indication: VIRILISM
     Dosage: 25 MG, 1X/DAY
     Route: 048
  7. SPIRONOLACTONE [Suspect]
     Indication: BLOOD TESTOSTERONE INCREASED
  8. PRAVASTATIN [Concomitant]
     Indication: BLOOD CHOLESTEROL INCREASED
     Dosage: 20 MG, 1X/DAY
     Dates: start: 20030101
  9. ALDACTONE [Suspect]
     Indication: POLYCYSTIC OVARIES
  10. SPIRONOLACTONE [Suspect]
     Dosage: 50 MG, 2X/DAY
     Route: 048
     Dates: start: 20110501
  11. LASIX [Concomitant]
     Indication: HYPERTENSION
     Dosage: 40 MG, 1X/DAY
     Dates: start: 20030101
  12. ADVAIR DISKUS 100/50 [Concomitant]
     Indication: ASTHMA
  13. VENTOLIN [Concomitant]
     Indication: ASTHMA
  14. SPIRONOLACTONE [Suspect]
     Indication: VIRILISM
     Dosage: 25 MG, 1X/DAY
     Route: 048
     Dates: end: 20030101
  15. ADVAIR DISKUS 100/50 [Concomitant]
     Indication: CHRONIC OBSTRUCTIVE PULMONARY DISEASE
     Dosage: UNK
     Dates: start: 20030101
  16. SPIRONOLACTONE [Suspect]
  17. LEVOTHYROXINE [Concomitant]
     Indication: HYPOTHYROIDISM
     Dosage: 100 UG, UNK

REACTIONS (5)
  - MALAISE [None]
  - FURUNCLE [None]
  - WRIST FRACTURE [None]
  - SCAR [None]
  - HYPERTENSION [None]
